FAERS Safety Report 21301875 (Version 3)
Quarter: 2023Q1

REPORT INFORMATION
  Report Type: Spontaneous
  Country: GR (occurrence: GR)
  Receive Date: 20220907
  Receipt Date: 20230104
  Transmission Date: 20230418
  Serious: Yes (Hospitalization)
  Sender: FDA-Public Use
  Company Number: GR-MYLANLABS-2022M1090454

PATIENT
  Age: 36 Day
  Sex: Male

DRUGS (7)
  1. VANCOMYCIN [Suspect]
     Active Substance: VANCOMYCIN
     Indication: Bacteraemia
     Dosage: 40 MG/KG, QD, 200 MG/KG, QD, 30TH HOUR OF HOSP.
     Route: 042
  2. VANCOMYCIN [Suspect]
     Active Substance: VANCOMYCIN
     Indication: Plasma cell myeloma
  3. VANCOMYCIN [Suspect]
     Active Substance: VANCOMYCIN
     Indication: Evidence based treatment
  4. AMIKACIN [Suspect]
     Active Substance: AMIKACIN
     Indication: Bacteraemia
     Dosage: 15 MG/KG,QD, DISCONTINUED AT 30TH H. OF HOSP
     Route: 042
  5. AMIKACIN [Suspect]
     Active Substance: AMIKACIN
     Indication: Plasma cell myeloma
  6. CEFOTAXIME [Suspect]
     Active Substance: CEFOTAXIME SODIUM
     Indication: Bacteraemia
     Dosage: 150 MILLIGRAM/KILOGRAM, QD, INITIALLY
     Route: 042
  7. CEFOTAXIME [Suspect]
     Active Substance: CEFOTAXIME SODIUM
     Dosage: 200 MG/KG, QD, 30TH H. OF HOSP, CONTINUED FOR 7D
     Route: 042

REACTIONS (3)
  - Palmar-plantar erythrodysaesthesia syndrome [Recovering/Resolving]
  - Drug ineffective [Recovered/Resolved]
  - Off label use [Unknown]
